FAERS Safety Report 24094228 (Version 1)
Quarter: 2024Q3

REPORT INFORMATION
  Report Type: Spontaneous
  Country: US (occurrence: US)
  Receive Date: 20240716
  Receipt Date: 20240716
  Transmission Date: 20241017
  Serious: No
  Sender: ALKEM
  Company Number: US-ALKEM LABORATORIES LIMITED-US-ALKEM-2024-11201

PATIENT
  Age: 14 Year

DRUGS (4)
  1. TOPIRAMATE [Suspect]
     Active Substance: TOPIRAMATE
     Indication: Hepatic steatosis
     Dosage: 25 MILLIGRAM, OD
     Route: 065
  2. TOPIRAMATE [Suspect]
     Active Substance: TOPIRAMATE
     Indication: Metabolic disorder
  3. PIOGLITAZONE [Concomitant]
     Active Substance: PIOGLITAZONE
     Indication: Hepatic steatosis
     Dosage: 15 MILLIGRAM, OD
     Route: 048
  4. PIOGLITAZONE [Concomitant]
     Active Substance: PIOGLITAZONE
     Indication: Metabolic disorder
     Dosage: 30 MILLIGRAM, OD (AFTER TWO WEEKS)
     Route: 048

REACTIONS (1)
  - Treatment noncompliance [Unknown]
